FAERS Safety Report 21719625 (Version 1)
Quarter: 2022Q4

REPORT INFORMATION
  Report Type: Spontaneous
  Country: SO (occurrence: SO)
  Receive Date: 20221213
  Receipt Date: 20221213
  Transmission Date: 20230113
  Serious: Yes (Death, Hospitalization, Other)
  Sender: FDA-Public Use
  Company Number: SO-IPCA LABORATORIES LIMITED-IPC-2022-SO-002076

PATIENT

DRUGS (1)
  1. WARFARIN [Suspect]
     Active Substance: WARFARIN
     Indication: Cerebral infarction
     Dosage: 5 MILLIGRAM
     Route: 065

REACTIONS (1)
  - Subarachnoid haemorrhage [Fatal]
